FAERS Safety Report 4487021-8 (Version None)
Quarter: 2004Q4

REPORT INFORMATION
  Report Type: 
  Country: None (occurrence: None)
  Receive Date: 20041027
  Receipt Date: 20041025
  Transmission Date: 20050328
  Serious: Yes (Hospitalization)
  Sender: FDA-Public Use
  Company Number: PHNU2004DE03653

PATIENT
  Age: 25 Year
  Sex: Male

DRUGS (18)
  1. CLOZARIL [Suspect]
     Indication: SCHIZOPHRENIA
     Dosage: 300 TO 400 MG/DAY
     Route: 048
     Dates: start: 20020101, end: 20031205
  2. CLOZARIL [Suspect]
     Dosage: 400 TO 500 MG/DAY
     Route: 048
     Dates: start: 20021206, end: 20030109
  3. CLOZARIL [Suspect]
     Dosage: 550 TO 600 MG/DAY
     Route: 048
     Dates: start: 20030110, end: 20030213
  4. CLOZARIL [Suspect]
     Dosage: 650 MG/DAY
     Route: 048
     Dates: start: 20030214, end: 20030306
  5. CLOZARIL [Suspect]
     Dosage: 700 MG/DAY
     Route: 048
     Dates: start: 20030307, end: 20030312
  6. CLOZARIL [Suspect]
     Dosage: 800 MG/DAY
     Route: 048
     Dates: start: 20030313, end: 20030321
  7. CLOZARIL [Suspect]
     Dosage: 600 MG/DAY
     Route: 048
     Dates: start: 20030322, end: 20030520
  8. CLOZARIL [Suspect]
     Dosage: 650 MG/DAY
     Route: 048
     Dates: start: 20030521, end: 20030707
  9. CLOZARIL [Suspect]
     Dosage: 500 MG/DAY
     Route: 048
     Dates: start: 20030708
  10. SOLIAN [Suspect]
     Dosage: 200 TO 400 MG/DAY
     Route: 048
     Dates: start: 20030604, end: 20030716
  11. SOLIAN [Suspect]
     Dosage: 600 MG/DAY
     Route: 048
     Dates: start: 20030717
  12. HYPNOREX [Suspect]
     Dosage: 600 MG/DAY
     Route: 048
     Dates: start: 20030327, end: 20030416
  13. HYPNOREX [Suspect]
     Dosage: 800 MG/DAY
     Route: 048
     Dates: start: 20030417, end: 20030424
  14. HYPNOREX [Suspect]
     Dosage: 100(?) MG/DAY
     Route: 048
     Dates: start: 20030425, end: 20030505
  15. HYPNOREX [Suspect]
     Dosage: 1200 MG/DAY
     Route: 048
     Dates: start: 20030506, end: 20030507
  16. HYPNOREX [Suspect]
     Dosage: 1400 MG/DAY
     Route: 048
     Dates: start: 20030508
  17. TAVOR [Concomitant]
     Dosage: 2.5 MG/DAY
     Route: 048
     Dates: end: 20021205
  18. TAVOR [Concomitant]
     Dosage: 2 TO 2.5 MG/DAY
     Route: 048
     Dates: start: 20021206

REACTIONS (2)
  - DRUG INTERACTION [None]
  - GRAND MAL CONVULSION [None]
